FAERS Safety Report 16393214 (Version 1)
Quarter: 2019Q2

REPORT INFORMATION
  Report Type: Spontaneous
  Country: US (occurrence: US)
  Receive Date: 20190605
  Receipt Date: 20190605
  Transmission Date: 20190711
  Serious: No
  Sender: FDA-Public Use
  Company Number: US-MYLANLABS-2019M1049995

PATIENT
  Sex: Male
  Weight: 84 kg

DRUGS (1)
  1. CLOBETASOL PROPIONATE FOAM [Suspect]
     Active Substance: CLOBETASOL PROPIONATE
     Indication: RASH PRURITIC
     Dosage: 5 PERCENT, QD
     Route: 003

REACTIONS (2)
  - Product dose omission [Not Recovered/Not Resolved]
  - Product physical issue [Not Recovered/Not Resolved]
